FAERS Safety Report 6162593-6 (Version None)
Quarter: 2009Q2

REPORT INFORMATION
  Report Type: 
  Country: None (occurrence: None)
  Receive Date: 20090421
  Receipt Date: 20080220
  Transmission Date: 20091009
  Serious: No
  Sender: FDA-Public Use
  Company Number: US-ASTRAZENECA-2007UW12845

PATIENT
  Age: 68 Year
  Sex: Female
  Weight: 71.7 kg

DRUGS (3)
  1. CRESTOR [Suspect]
     Indication: DYSLIPIDAEMIA
     Route: 048
     Dates: start: 20070801
  2. CRESTOR [Suspect]
     Route: 048
  3. SYNTHROID [Concomitant]

REACTIONS (8)
  - ABDOMINAL PAIN [None]
  - CORONARY ARTERY DISEASE [None]
  - DRY EYE [None]
  - EYE PRURITUS [None]
  - LOCAL SWELLING [None]
  - PERIPHERAL COLDNESS [None]
  - PHARYNGEAL OEDEMA [None]
  - THYROID FUNCTION TEST ABNORMAL [None]
